FAERS Safety Report 26024259 (Version 1)
Quarter: 2025Q4

REPORT INFORMATION
  Report Type: Report from Study
  Country: US (occurrence: US)
  Receive Date: 20251111
  Receipt Date: 20251111
  Transmission Date: 20260117
  Serious: No
  Sender: JOHNSON AND JOHNSON
  Company Number: US-JNJFOC-20251144558

PATIENT

DRUGS (1)
  1. GUSELKUMAB [Suspect]
     Active Substance: GUSELKUMAB
     Indication: Product used for unknown indication
     Dosage: STRENGTH: UNKNOWN
     Route: 065

REACTIONS (1)
  - Device deployment issue [Unknown]
